FAERS Safety Report 24968887 (Version 1)
Quarter: 2025Q1

REPORT INFORMATION
  Report Type: Spontaneous
  Country: JP (occurrence: JP)
  Receive Date: 20250214
  Receipt Date: 20250214
  Transmission Date: 20250409
  Serious: Yes (Hospitalization, Other)
  Sender: MSN LABORATORIES PRIVATE LIMITED
  Company Number: JP-MSNLABS-2025MSNLIT00355

PATIENT

DRUGS (1)
  1. SILDENAFIL [Suspect]
     Active Substance: SILDENAFIL
     Indication: Pulmonary hypertension
     Dosage: 20 MG, TWICE DAILY
     Route: 065

REACTIONS (3)
  - Right ventricular failure [Recovered/Resolved]
  - Pulmonary hypertension [Recovered/Resolved]
  - Shock [Recovered/Resolved]
